FAERS Safety Report 8336406-8 (Version None)
Quarter: 2012Q2

REPORT INFORMATION
  Report Type: 
  Country: None (occurrence: None)
  Receive Date: 20120504
  Receipt Date: 20120430
  Transmission Date: 20120825
  Serious: Yes (Disabling)
  Sender: FDA-Public Use
  Company Number: PHHY2012IT020451

PATIENT
  Sex: Male

DRUGS (9)
  1. DECADRON [Concomitant]
  2. ACYCLOVIR [Concomitant]
  3. NOVORAPID [Concomitant]
  4. BENADON [Concomitant]
  5. ZOMETA [Suspect]
     Indication: MULTIPLE MYELOMA
     Dosage: CYCLIC DOSAGE OF 4 MG
     Route: 042
     Dates: start: 20070101, end: 20120101
  6. VELCADE [Concomitant]
  7. OXCARBAZEPINE [Concomitant]
  8. AMITRIPTYLINE HCL [Concomitant]
  9. NICETILE [Concomitant]

REACTIONS (1)
  - OSTEONECROSIS OF JAW [None]
